FAERS Safety Report 6905509-4 (Version None)
Quarter: 2010Q3

REPORT INFORMATION
  Report Type: 
  Country: None (occurrence: None)
  Receive Date: 20100804
  Receipt Date: 20100726
  Transmission Date: 20110219
  Serious: Yes (Other)
  Sender: FDA-Public Use
  Company Number: CZ-PFIZER INC-2010092976

PATIENT
  Age: 63 Year
  Sex: Male

DRUGS (5)
  1. XALATAN [Suspect]
     Indication: INTRAOCULAR PRESSURE INCREASED
     Dosage: UNK
  2. LUMIGAN [Suspect]
     Dosage: UNK
  3. BIMATOPROST AND TIMOLOL MALEATE [Suspect]
     Dosage: UNK
  4. ALPHAGAN [Suspect]
     Dosage: UNK
  5. TEBOKAN [Suspect]
     Dosage: UNK

REACTIONS (2)
  - DRUG INEFFECTIVE [None]
  - OPHTHALMOLOGICAL EXAMINATION ABNORMAL [None]
